FAERS Safety Report 8129756-1 (Version None)
Quarter: 2011Q4

REPORT INFORMATION
  Report Type: 
  Country: None (occurrence: None)
  Receive Date: 20111227
  Receipt Date: 20110429
  Transmission Date: 20120403
  Serious: No
  Sender: FDA-Public Use
  Company Number: PHEH2011US08473

PATIENT
  Age: 43 Year
  Sex: Female

DRUGS (6)
  1. ZOMIG (ZOLMITRIPTAN) NASAL SPRAY [Concomitant]
  2. TOPIRAMATE [Concomitant]
  3. GILENYA [Suspect]
     Indication: MULTIPLE SCLEROSIS
     Dosage: 0.5 MG, DAILY, ORAL
     Route: 048
     Dates: start: 20101228
  4. SYNTHROID [Concomitant]
  5. LITHIUM CARBONATE [Concomitant]
  6. BUPROPION HCL [Concomitant]

REACTIONS (1)
  - FATIGUE [None]
